FAERS Safety Report 7745188-X (Version None)
Quarter: 2011Q3

REPORT INFORMATION
  Report Type: 
  Country: None (occurrence: None)
  Receive Date: 20110913
  Receipt Date: 20110903
  Transmission Date: 20111222
  Serious: Yes (Death, Other)
  Sender: FDA-Public Use
  Company Number: DE-PAR PHARMACEUTICAL, INC-2011SCPR003223

PATIENT

DRUGS (3)
  1. TEMOZOLOMIDE [Suspect]
     Indication: GLIOBLASTOMA MULTIFORME
     Dosage: 75 MG/M2 DAILY
     Route: 065
  2. DEXAMETHASONE [Suspect]
     Indication: GLIOBLASTOMA MULTIFORME
  3. DEXAMETHASONE [Suspect]
     Indication: SUPPORTIVE CARE
     Dosage: UNK, UNKNOWN
     Route: 065

REACTIONS (4)
  - SALMONELLOSIS [None]
  - PANCYTOPENIA [None]
  - DEATH [None]
  - NEOPLASM PROGRESSION [None]
